FAERS Safety Report 21309084 (Version 2)
Quarter: 2022Q3

REPORT INFORMATION
  Report Type: Spontaneous
  Country: US (occurrence: US)
  Receive Date: 20220908
  Receipt Date: 20220921
  Transmission Date: 20221027
  Serious: Yes (Life-Threatening, Hospitalization)
  Sender: FDA-Public Use
  Company Number: US-TEVA-2022-US-2070209

PATIENT
  Age: 5 Year
  Sex: Male

DRUGS (8)
  1. AMOXICILLIN [Suspect]
     Active Substance: AMOXICILLIN
     Indication: Antibiotic therapy
     Dosage: A STANDARD 10-DAY COURSE ; THE PATIENT^S FAMILY WAS INSTRUCTED TO OPEN THE CAPSULE AND MIX T...
     Route: 048
  2. CEFDINIR [Suspect]
     Active Substance: CEFDINIR
     Indication: Antibiotic therapy
     Route: 048
  3. FLUTICASONE PROPIONATE AND SALMETEROL [Suspect]
     Active Substance: FLUTICASONE PROPIONATE\SALMETEROL XINAFOATE
     Indication: Asthma
     Route: 065
  4. FLUTICASONE PROPIONATE AND SALMETEROL [Suspect]
     Active Substance: FLUTICASONE PROPIONATE\SALMETEROL XINAFOATE
  5. PREDNISOLONE [Suspect]
     Active Substance: PREDNISOLONE
     Indication: Asthma
     Dosage: FIVE-DAY COURSE
     Route: 048
  6. AZITHROMYCIN [Suspect]
     Active Substance: AZITHROMYCIN
     Indication: Antibiotic therapy
     Route: 048
  7. CEFTRIAXONE [Concomitant]
     Active Substance: CEFTRIAXONE
     Indication: Antibiotic therapy
     Route: 030
  8. CEFTRIAXONE [Concomitant]
     Active Substance: CEFTRIAXONE
     Indication: Antibiotic therapy
     Route: 042

REACTIONS (8)
  - Pneumonia [Recovering/Resolving]
  - Pulmonary cavitation [Recovering/Resolving]
  - Bronchiectasis [Recovering/Resolving]
  - Atelectasis [Recovering/Resolving]
  - Bronchial secretion retention [Recovering/Resolving]
  - Pneumonia haemophilus [Recovering/Resolving]
  - Pneumonia moraxella [Recovering/Resolving]
  - Treatment noncompliance [Unknown]
